FAERS Safety Report 5457098-1 (Version None)
Quarter: 2007Q3

REPORT INFORMATION
  Report Type: 
  Country: None (occurrence: None)
  Receive Date: 20070918
  Receipt Date: 20061227
  Transmission Date: 20080115
  Serious: No
  Sender: FDA-Public Use
  Company Number: US-ASTRAZENECA-2006UW28629

PATIENT
  Age: 36 Year
  Sex: Female
  Weight: 65.8 kg

DRUGS (9)
  1. SEROQUEL [Suspect]
     Indication: BIPOLAR DISORDER
     Route: 048
  2. SEROQUEL [Suspect]
     Indication: PANIC ATTACK
     Route: 048
  3. SEROQUEL [Suspect]
     Indication: OBSESSIVE-COMPULSIVE DISORDER
     Route: 048
  4. SEROQUEL [Suspect]
     Route: 048
  5. SEROQUEL [Suspect]
     Route: 048
  6. SEROQUEL [Suspect]
     Route: 048
  7. PROZAC [Concomitant]
  8. AMBIEN [Concomitant]
  9. XANAX [Concomitant]

REACTIONS (3)
  - DRY MOUTH [None]
  - HEART RATE INCREASED [None]
  - PANIC ATTACK [None]
